FAERS Safety Report 7927109-X (Version None)
Quarter: 2011Q4

REPORT INFORMATION
  Report Type: 
  Country: None (occurrence: None)
  Receive Date: 20111118
  Receipt Date: 20111111
  Transmission Date: 20120403
  Serious: Yes (Hospitalization)
  Sender: FDA-Public Use
  Company Number: JP-JNJFOC-20111105763

PATIENT
  Age: 15 Month
  Sex: Female

DRUGS (1)
  1. RISPERDAL [Suspect]
     Indication: ACCIDENTAL EXPOSURE
     Route: 048
     Dates: start: 20111109, end: 20111109

REACTIONS (3)
  - TREMOR [None]
  - ACCIDENTAL EXPOSURE [None]
  - ALTERED STATE OF CONSCIOUSNESS [None]
